FAERS Safety Report 7430443-3 (Version None)
Quarter: 2011Q2

REPORT INFORMATION
  Report Type: 
  Country: None (occurrence: None)
  Receive Date: 20110421
  Receipt Date: 20101104
  Transmission Date: 20111010
  Serious: No
  Sender: FDA-Public Use
  Company Number: US-ASTRAZENECA-2010SE52607

PATIENT
  Sex: Female
  Weight: 63.5 kg

DRUGS (7)
  1. CRESTOR [Concomitant]
  2. SINGULAIR [Concomitant]
  3. TOPROL-XL [Suspect]
     Route: 048
  4. ASPIRIN [Concomitant]
  5. VITAMINS [Concomitant]
  6. PLAVIX [Concomitant]
  7. ADVAIR HFA [Concomitant]

REACTIONS (1)
  - NAIL DISORDER [None]
